FAERS Safety Report 13300491 (Version 1)
Quarter: 2017Q1

REPORT INFORMATION
  Report Type: Spontaneous
  Country: US (occurrence: US)
  Receive Date: 20170307
  Receipt Date: 20170307
  Transmission Date: 20170428
  Serious: No
  Sender: FDA-Public Use
  Company Number: US-009507513-1702USA008388

PATIENT
  Age: 55 Year
  Sex: Female

DRUGS (1)
  1. REMERON [Suspect]
     Active Substance: MIRTAZAPINE
     Indication: JC VIRUS INFECTION
     Dosage: 15 MG DAILY
     Route: 048

REACTIONS (2)
  - Somnolence [Unknown]
  - Off label use [Unknown]
